FAERS Safety Report 7324772-1 (Version None)
Quarter: 2011Q1

REPORT INFORMATION
  Report Type: 
  Country: None (occurrence: None)
  Receive Date: 20110301
  Receipt Date: 20100125
  Transmission Date: 20110831
  Serious: Yes (Life-Threatening, Hospitalization, Disabling, Other)
  Sender: FDA-Public Use
  Company Number: GB-BAUSCH-2010BL000440

PATIENT
  Age: 10 Year
  Sex: Male

DRUGS (11)
  1. ABACAVIR [Suspect]
     Indication: ANTIRETROVIRAL THERAPY
  2. COTRIM [Suspect]
     Indication: ANTIRETROVIRAL THERAPY
  3. DIDANOSINE [Suspect]
     Indication: ANTIRETROVIRAL THERAPY
  4. NELFINAVIR [Suspect]
     Indication: ANTIRETROVIRAL THERAPY
  5. RALTEGRAVIR [Suspect]
     Indication: ANTIRETROVIRAL THERAPY
  6. ZIDOVUDINE [Suspect]
     Indication: ANTIRETROVIRAL THERAPY
     Route: 048
     Dates: start: 20070330, end: 20070701
  7. RAPAMUNE [Suspect]
     Indication: PROPHYLAXIS AGAINST TRANSPLANT REJECTION
  8. EFAVIRENZ [Suspect]
     Indication: ANTIRETROVIRAL THERAPY
     Route: 048
     Dates: start: 20070302, end: 20070701
  9. MYCOPHENOLATE MOFETIL [Suspect]
     Indication: PROPHYLAXIS AGAINST TRANSPLANT REJECTION
  10. PREDNISOLONE [Suspect]
     Indication: PROPHYLAXIS AGAINST TRANSPLANT REJECTION
  11. LAMIVUDINE [Suspect]
     Indication: ANTIRETROVIRAL THERAPY
     Route: 048
     Dates: start: 20070330, end: 20070701

REACTIONS (12)
  - ACUTE HEPATIC FAILURE [None]
  - DISEASE RECURRENCE [None]
  - HYPERTENSION [None]
  - GRAFT DYSFUNCTION [None]
  - TRANSPLANT REJECTION [None]
  - DRUG INEFFECTIVE [None]
  - TOXICITY TO VARIOUS AGENTS [None]
  - HYPERLIPIDAEMIA [None]
  - MYOPATHY [None]
  - CACHEXIA [None]
  - RENAL IMPAIRMENT [None]
  - HEPATIC ENCEPHALOPATHY [None]
